FAERS Safety Report 14455905 (Version 1)
Quarter: 2018Q1

REPORT INFORMATION
  Report Type: Spontaneous
  Country: US (occurrence: US)
  Receive Date: 20180130
  Receipt Date: 20180130
  Transmission Date: 20180509
  Serious: Yes (Life-Threatening, Hospitalization)
  Sender: FDA-Public Use
  Company Number: US-SUN PHARMACEUTICAL INDUSTRIES LTD-2018US-161531

PATIENT
  Age: 34 Year
  Sex: Male

DRUGS (1)
  1. BACTRIM [Suspect]
     Active Substance: SULFAMETHOXAZOLE\TRIMETHOPRIM
     Indication: SINUSITIS
     Route: 065

REACTIONS (4)
  - Drug hypersensitivity [Unknown]
  - Histiocytosis haematophagic [Unknown]
  - Multiple organ dysfunction syndrome [Recovered/Resolved]
  - Encephalopathy [Recovering/Resolving]
